FAERS Safety Report 6823374-0 (Version None)
Quarter: 2010Q3

REPORT INFORMATION
  Report Type: 
  Country: None (occurrence: None)
  Receive Date: 20100702
  Receipt Date: 20100621
  Transmission Date: 20110219
  Serious: Yes (Other)
  Sender: FDA-Public Use
  Company Number: AUR-APL-2010-01626

PATIENT
  Age: 77 Year
  Sex: Female

DRUGS (2)
  1. ALENDRONATE SODIUM [Suspect]
  2. IBANDRONATE SODIUM [Suspect]

REACTIONS (3)
  - ARTHRALGIA [None]
  - FRACTURE [None]
  - PATHOLOGICAL FRACTURE [None]
